FAERS Safety Report 7411060-8 (Version None)
Quarter: 2011Q2

REPORT INFORMATION
  Report Type: 
  Country: None (occurrence: None)
  Receive Date: 20110413
  Receipt Date: 20110405
  Transmission Date: 20111010
  Serious: Yes (Hospitalization)
  Sender: FDA-Public Use
  Company Number: US-EISAI INC-E7389-01211-CLI-US

PATIENT
  Sex: Male
  Weight: 82 kg

DRUGS (6)
  1. LOVENOX [Concomitant]
     Indication: THROMBOSIS PROPHYLAXIS
     Route: 058
     Dates: start: 20101206
  2. CARBOPLATIN [Concomitant]
     Indication: NON-SMALL CELL LUNG CANCER
     Dosage: AUC 6
     Route: 041
     Dates: start: 20101228, end: 20110308
  3. FOLIC ACID [Concomitant]
     Route: 048
     Dates: start: 20101201
  4. E7389 (BOLD) [Suspect]
     Indication: NON-SMALL CELL LUNG CANCER
     Route: 041
     Dates: start: 20110119, end: 20110322
  5. E7389 (BOLD) [Suspect]
     Route: 041
     Dates: start: 20101228, end: 20110119
  6. METOCLOPRAMIDE [Concomitant]
     Indication: NAUSEA
     Route: 048
     Dates: start: 20101228

REACTIONS (1)
  - PNEUMONITIS [None]
